FAERS Safety Report 18402539 (Version 2)
Quarter: 2020Q4

REPORT INFORMATION
  Report Type: Spontaneous
  Country: JP (occurrence: JP)
  Receive Date: 20201019
  Receipt Date: 20201102
  Transmission Date: 20210114
  Serious: Yes (Hospitalization)
  Sender: FDA-Public Use
  Company Number: JP-VIIV HEALTHCARE LIMITED-JP2020JPN202776

PATIENT
  Age: 48 Year
  Sex: Male

DRUGS (6)
  1. ISENTRESS [Concomitant]
     Active Substance: RALTEGRAVIR POTASSIUM
     Indication: HIV ANTIBODY POSITIVE
     Dosage: UNK
  2. DORAVIRINE [Concomitant]
     Active Substance: DORAVIRINE
     Indication: HIV ANTIBODY POSITIVE
     Dosage: UNK
  3. EMTRIVA [Suspect]
     Active Substance: EMTRICITABINE
     Indication: HIV ANTIBODY POSITIVE
     Dosage: UNK
  4. TIVICAY [Suspect]
     Active Substance: DOLUTEGRAVIR SODIUM
     Indication: HIV ANTIBODY POSITIVE
     Dosage: UNK
     Route: 048
  5. VIREAD [Suspect]
     Active Substance: TENOFOVIR DISOPROXIL FUMARATE
     Indication: HIV ANTIBODY POSITIVE
     Dosage: UNK
  6. BIKTARVY [Suspect]
     Active Substance: BICTEGRAVIR SODIUM\EMTRICITABINE\TENOFOVIR ALAFENAMIDE FUMARATE
     Indication: HIV ANTIBODY POSITIVE
     Dosage: UNK

REACTIONS (1)
  - Blood triglycerides increased [Recovering/Resolving]
